FAERS Safety Report 17715341 (Version 1)
Quarter: 2020Q2

REPORT INFORMATION
  Report Type: Spontaneous
  Country: SG (occurrence: SG)
  Receive Date: 20200427
  Receipt Date: 20200427
  Transmission Date: 20200714
  Serious: Yes (Hospitalization)
  Sender: FDA-Public Use
  Company Number: SG-JUBILANT PHARMA LTD-2020SG000258

PATIENT
  Age: 56 Year
  Sex: Male

DRUGS (2)
  1. SODIUM IODIDE I-131. [Suspect]
     Active Substance: SODIUM IODIDE I-131
     Indication: HYPERTHYROIDISM
     Dosage: 27 MCI, SINGLE DOSE
  2. SODIUM IODIDE I-131. [Suspect]
     Active Substance: SODIUM IODIDE I-131
     Indication: BASEDOW^S DISEASE
     Dosage: 25 MCI, SINGLE DOSE

REACTIONS (11)
  - Tachycardia [Recovered/Resolved]
  - Cardiac failure congestive [Recovered/Resolved]
  - Treatment noncompliance [Recovered/Resolved]
  - Radiation thyroiditis [Recovered/Resolved]
  - Hyperthyroidism [Recovered/Resolved]
  - Atrial fibrillation [Recovered/Resolved]
  - Post procedural hypothyroidism [Not Recovered/Not Resolved]
  - Chest discomfort [Recovered/Resolved]
  - Dyspnoea exertional [Recovered/Resolved]
  - Orthopnoea [Recovered/Resolved]
  - Exercise tolerance decreased [Recovered/Resolved]
